FAERS Safety Report 22975352 (Version 2)
Quarter: 2024Q1

REPORT INFORMATION
  Report Type: Spontaneous
  Country: DE (occurrence: DE)
  Receive Date: 20230924
  Receipt Date: 20240209
  Transmission Date: 20240409
  Serious: Yes (Hospitalization)
  Sender: FDA-Public Use
  Company Number: DE-DCGMA-232018

PATIENT
  Age: 67 Year
  Sex: Female
  Weight: 105 kg

DRUGS (10)
  1. SITAGLIPTIN PHOSPHATE [Suspect]
     Active Substance: SITAGLIPTIN PHOSPHATE
     Indication: Type 2 diabetes mellitus
     Dosage: 100 MILLIGRAM; 2X50MG; USED FOR MANY WEEKS.
     Route: 048
  2. METFORMIN [Suspect]
     Active Substance: METFORMIN HYDROCHLORIDE
     Indication: Type 2 diabetes mellitus
     Dosage: 2000 MILLIGRAM; DOSAGE TEXT: 2X1000MG, USED FOR MANY WEEKS.
  3. GABAPENTIN [Concomitant]
     Active Substance: GABAPENTIN
     Indication: Dysaesthesia
     Dosage: 2400 MILLIGRAM; DOSAGE TEXT: 4X600MG
  4. MIRTAZAPINE [Concomitant]
     Active Substance: MIRTAZAPINE
     Indication: Apathy
     Dosage: 30 MILLIGRAM
  5. RAMIPRIL [Concomitant]
     Active Substance: RAMIPRIL
     Indication: Hypertension
     Dosage: 2.5 MILLIGRAM; DOSAGE TEST: 1X2.5MG
  6. ESOMEPRAZOLE [Concomitant]
     Active Substance: ESOMEPRAZOLE
     Indication: Prophylaxis against gastrointestinal ulcer
     Dosage: 40 MILLIGRAM, DOSAGE TEXT: 1X40MG
  7. METOPROLOL [Concomitant]
     Active Substance: METOPROLOL
     Indication: Tachycardia
     Dosage: 95 MILLIGRAM; DOSAGE TEXT: 2X47.5MG
  8. ESCITALOPRAM [Concomitant]
     Active Substance: ESCITALOPRAM OXALATE
     Indication: Apathy
     Dosage: 20 MILLIGRAM
  9. METHIONINE [Concomitant]
     Active Substance: METHIONINE
     Indication: Bacteriuria
     Dosage: 1500 MILLIGRAM, DOSAGE TEXT: 3X500MG
  10. FUROSEMIDE [Concomitant]
     Active Substance: FUROSEMIDE
     Indication: Oedema
     Dosage: 120 MILLIGRAM; DOSAGE TEXT: 4X30MG

REACTIONS (2)
  - Pyrexia [Recovered/Resolved]
  - Blood lactic acid increased [Recovered/Resolved]

NARRATIVE: CASE EVENT DATE: 20230621
